FAERS Safety Report 4429085-3 (Version None)
Quarter: 2004Q3

REPORT INFORMATION
  Report Type: 
  Country: None (occurrence: None)
  Receive Date: 20040726
  Receipt Date: 20040312
  Transmission Date: 20050211
  Serious: No
  Sender: FDA-Public Use
  Company Number: USA040361806

PATIENT
  Age: 61 Year
  Sex: Female
  Weight: 53 kg

DRUGS (12)
  1. FORTEO [Suspect]
     Indication: BONE DENSITY DECREASED
     Dosage: 20 UG/1 DAY
     Dates: start: 20040211
  2. COUMADIN [Concomitant]
  3. PRAVACHOL [Concomitant]
  4. LOPRESSOR [Concomitant]
  5. PRINIVIL [Concomitant]
  6. NITROBID (GLYCERYL TRINITRATE) [Concomitant]
  7. PREVACID [Concomitant]
  8. ALBUTEROL [Concomitant]
  9. FLONASE [Concomitant]
  10. SEREVENT [Concomitant]
  11. CARBIDOPA AND LEVODOPA [Concomitant]
  12. PLAQUENIL [Concomitant]

REACTIONS (1)
  - COAGULATION TIME PROLONGED [None]
